FAERS Safety Report 15495356 (Version 1)
Quarter: 2018Q4

REPORT INFORMATION
  Report Type: Report from Study
  Country: None (occurrence: CO)
  Receive Date: 20181013
  Receipt Date: 20181013
  Transmission Date: 20190205
  Serious: Yes (Other)
  Sender: FDA-Public Use
  Company Number: CO-ABBVIE-18K-036-2399466-00

PATIENT
  Sex: Female

DRUGS (2)
  1. HUMIRA [Suspect]
     Active Substance: ADALIMUMAB
     Indication: RHEUMATOID ARTHRITIS
     Route: 058
     Dates: start: 20090317
  2. HUMIRA [Suspect]
     Active Substance: ADALIMUMAB
     Indication: RHEUMATOID ARTHRITIS
     Route: 058

REACTIONS (8)
  - Amnesia [Unknown]
  - Bursitis [Unknown]
  - Pain in extremity [Recovering/Resolving]
  - Migraine [Unknown]
  - Chest discomfort [Unknown]
  - Dry eye [Unknown]
  - Diplopia [Unknown]
  - Optic neuritis [Unknown]

NARRATIVE: CASE EVENT DATE: 2014
